FAERS Safety Report 8305908-2 (Version None)
Quarter: 2012Q1

REPORT INFORMATION
  Report Type: 
  Country: None (occurrence: None)
  Receive Date: 20120326
  Receipt Date: 20111209
  Transmission Date: 20120608
  Serious: Yes (Other)
  Sender: FDA-Public Use
  Company Number: PHEH2011US011321

PATIENT
  Age: 41 Year
  Sex: Female

DRUGS (1)
  1. VIVELLE-DOT [Suspect]
     Dosage: 0.05 MG, TWICE WEEK, TRANSDERMAL ; 0.1 MG, TWICE WEEK, TRANSDERMAL
     Route: 062

REACTIONS (2)
  - DEPRESSION [None]
  - HORMONE LEVEL ABNORMAL [None]
